FAERS Safety Report 5275694-1 (Version None)
Quarter: 2007Q1

REPORT INFORMATION
  Report Type: 
  Country: None (occurrence: None)
  Receive Date: 20070326
  Receipt Date: 20070315
  Transmission Date: 20070707
  Serious: Yes (Hospitalization)
  Sender: FDA-Public Use
  Company Number: US-KINGPHARMUSA00001-K200700303

PATIENT

DRUGS (5)
  1. ALTACE [Suspect]
     Indication: ESSENTIAL HYPERTENSION
     Dosage: 2.5 MG, QD
     Route: 048
     Dates: end: 20061113
  2. GLYBURIDE [Suspect]
     Indication: DIABETES MELLITUS NON-INSULIN-DEPENDENT
     Dosage: 1.25 MG, BID
     Route: 048
     Dates: end: 20061113
  3. DAFALGAN   /00020001/ [Concomitant]
     Indication: ARTHROPATHY
     Dosage: 1 G, QID
     Route: 048
  4. LASILIX    /00032601/ [Concomitant]
     Dosage: 40 MG, QD
     Route: 048
  5. NOCTRAN 10 [Concomitant]
     Indication: SLEEP DISORDER
     Dosage: 10 MG, QD
     Route: 048

REACTIONS (7)
  - AMYOTROPHY [None]
  - DRUG INTERACTION [None]
  - DYSARTHRIA [None]
  - FACIAL PALSY [None]
  - HEMIPARESIS [None]
  - HYPOGLYCAEMIA [None]
  - POOR PERIPHERAL CIRCULATION [None]
